FAERS Safety Report 15561811 (Version 1)
Quarter: 2018Q4

REPORT INFORMATION
  Report Type: Spontaneous
  Country: US (occurrence: US)
  Receive Date: 20181029
  Receipt Date: 20181029
  Transmission Date: 20190205
  Serious: Yes (Other)
  Sender: FDA-Public Use
  Company Number: None

PATIENT
  Age: 79 Year
  Sex: Male
  Weight: 78.75 kg

DRUGS (10)
  1. ZYRTEC [Concomitant]
     Active Substance: CETIRIZINE HYDROCHLORIDE
  2. ASPIRIN ADULT LOW DOSE [Concomitant]
     Active Substance: ASPIRIN
  3. FAMCICLOVIR. [Concomitant]
     Active Substance: FAMCICLOVIR
  4. ACYCLOVIR. [Concomitant]
     Active Substance: ACYCLOVIR
  5. REVLIMID [Concomitant]
     Active Substance: LENALIDOMIDE
  6. ZOMETA [Concomitant]
     Active Substance: ZOLEDRONIC ACID
  7. NEUPOGEN [Concomitant]
     Active Substance: FILGRASTIM
  8. NINLARO [Suspect]
     Active Substance: IXAZOMIB CITRATE
     Indication: PLASMA CELL MYELOMA
     Dosage: ?          OTHER FREQUENCY:DAYS 1, 8, AND 15;?
     Route: 048
     Dates: start: 20180926
  9. MULTIVITAMIN [Concomitant]
     Active Substance: VITAMINS
  10. CALCIUM+D [Concomitant]
     Active Substance: CALCIUM\VITAMIN D

REACTIONS (1)
  - Rash [None]

NARRATIVE: CASE EVENT DATE: 20181029
